FAERS Safety Report 9388735 (Version 3)
Quarter: 2013Q3

REPORT INFORMATION
  Report Type: Report from Study
  Country: US (occurrence: US)
  Receive Date: 20130708
  Receipt Date: 20130801
  Transmission Date: 20140515
  Serious: Yes (Other)
  Sender: FDA-Public Use
  Company Number: US-VERTEX PHARMACEUTICALS INC-2013-007752

PATIENT
  Sex: Female

DRUGS (6)
  1. VX-770 [Suspect]
     Indication: CYSTIC FIBROSIS
     Dosage: 150 MG, BID
     Dates: start: 201208
  2. PULMOZYME [Concomitant]
  3. ALBUTEROL [Concomitant]
  4. HYPER-SAL [Concomitant]
  5. FLOVENT [Concomitant]
  6. CREON [Concomitant]

REACTIONS (7)
  - Pancreatic enzymes increased [Unknown]
  - Infectious mononucleosis [Unknown]
  - Weight increased [Unknown]
  - Constipation [Unknown]
  - Spleen disorder [Unknown]
  - Treatment noncompliance [Unknown]
  - Abdominal pain [Recovered/Resolved]
